FAERS Safety Report 5867237-6 (Version None)
Quarter: 2008Q3

REPORT INFORMATION
  Report Type: 
  Country: None (occurrence: None)
  Receive Date: 20080902
  Receipt Date: 20080826
  Transmission Date: 20090109
  Serious: No
  Sender: FDA-Public Use
  Company Number: US-MERCK-0803USA02431M

PATIENT
  Age: 20 Year
  Sex: Female

DRUGS (3)
  1. JANUVIA [Suspect]
     Indication: GESTATIONAL DIABETES
     Route: 048
     Dates: start: 20080301
  2. [THERAPY UNSPECIFIED] [Concomitant]
     Route: 065
  3. VITAMINS (UNSPECIFIED) [Concomitant]
     Route: 065

REACTIONS (3)
  - BLOOD GLUCOSE INCREASED [None]
  - DRUG EXPOSURE DURING PREGNANCY [None]
  - OFF LABEL USE [None]
